FAERS Safety Report 20382126 (Version 1)
Quarter: 2022Q1

REPORT INFORMATION
  Report Type: Spontaneous
  Country: DK (occurrence: DK)
  Receive Date: 20220127
  Receipt Date: 20220127
  Transmission Date: 20220424
  Serious: Yes (Life-Threatening)
  Sender: FDA-Public Use
  Company Number: None

PATIENT
  Age: 82 Year
  Sex: Male

DRUGS (5)
  1. OXYCODONE [Suspect]
     Active Substance: OXYCODONE
     Indication: Pain
     Dosage: DOSAGE: MAX 6 TIMES DAILY, PATIENT RECEIVED 2 X 5 MG WITHIN A FEW HOURS BEFORE ADR , UNIT DOSE : 5 M
     Route: 048
     Dates: start: 20211231, end: 20211231
  2. HJERTEMAGNYL [Concomitant]
     Indication: Anticoagulant therapy
     Dates: start: 20141230
  3. STRIVERDI RESPIMAT [Concomitant]
     Active Substance: OLODATEROL HYDROCHLORIDE
     Indication: Chronic obstructive pulmonary disease
     Dates: start: 20200515
  4. GANGIDEN [Concomitant]
     Indication: Product used for unknown indication
     Dosage: START DATE UNKNOWN
  5. DULCOLAX NOS [Concomitant]
     Active Substance: BISACODYL OR DOCUSATE SODIUM
     Indication: Constipation
     Dosage: START DATE UNKNOWN

REACTIONS (2)
  - Respiratory depression [Unknown]
  - Hypercapnia [Unknown]

NARRATIVE: CASE EVENT DATE: 20211231
